FAERS Safety Report 19920081 (Version 10)
Quarter: 2022Q2

REPORT INFORMATION
  Report Type: Report from Study
  Country: US (occurrence: US)
  Receive Date: 20211006
  Receipt Date: 20220414
  Transmission Date: 20220720
  Serious: Yes (Hospitalization, Other)
  Sender: FDA-Public Use
  Company Number: US-BIOGEN-2021BI01052834

PATIENT
  Age: 60 Year
  Sex: Female

DRUGS (6)
  1. TYSABRI [Suspect]
     Active Substance: NATALIZUMAB
     Indication: Multiple sclerosis
     Route: 065
     Dates: start: 20120118, end: 20170629
  2. TYSABRI [Suspect]
     Active Substance: NATALIZUMAB
     Route: 065
     Dates: start: 20180308, end: 20200812
  3. TYSABRI [Suspect]
     Active Substance: NATALIZUMAB
     Route: 065
     Dates: start: 20210927
  4. TYSABRI [Suspect]
     Active Substance: NATALIZUMAB
     Route: 065
  5. TYSABRI [Suspect]
     Active Substance: NATALIZUMAB
     Route: 065
  6. BACLOFEN [Concomitant]
     Active Substance: BACLOFEN
     Indication: Product used for unknown indication
     Dosage: 10
     Route: 048

REACTIONS (23)
  - Multiple sclerosis relapse [Not Recovered/Not Resolved]
  - Seizure [Not Recovered/Not Resolved]
  - Blindness transient [Recovered/Resolved]
  - Vein disorder [Not Recovered/Not Resolved]
  - Blood disorder [Unknown]
  - Lung disorder [Unknown]
  - Dehydration [Recovered/Resolved]
  - Cognitive disorder [Unknown]
  - Neutropenia [Unknown]
  - Multiple sclerosis [Not Recovered/Not Resolved]
  - Head discomfort [Not Recovered/Not Resolved]
  - Immune system disorder [Unknown]
  - Aphasia [Recovered/Resolved]
  - Stress [Unknown]
  - Uveitis [Not Recovered/Not Resolved]
  - Memory impairment [Not Recovered/Not Resolved]
  - Sinusitis [Not Recovered/Not Resolved]
  - Diplopia [Unknown]
  - Respiratory disorder [Unknown]
  - Hypersensitivity [Recovered/Resolved]
  - Muscle spasms [Not Recovered/Not Resolved]
  - Depression [Unknown]
  - Pyrexia [Unknown]

NARRATIVE: CASE EVENT DATE: 20200812
